FAERS Safety Report 7292633-2 (Version None)
Quarter: 2011Q1

REPORT INFORMATION
  Report Type: 
  Country: None (occurrence: None)
  Receive Date: 20110215
  Receipt Date: 20110207
  Transmission Date: 20110831
  Serious: Yes (Other)
  Sender: FDA-Public Use
  Company Number: US-US-EMD SERONO, INC.-7035259

PATIENT
  Sex: Female
  Weight: 78 kg

DRUGS (1)
  1. REBIF [Suspect]
     Indication: MULTIPLE SCLEROSIS
     Route: 058
     Dates: start: 20021230

REACTIONS (3)
  - UTERINE CANCER [None]
  - PROCEDURAL PAIN [None]
  - HOT FLUSH [None]
